FAERS Safety Report 6225265-5 (Version None)
Quarter: 2009Q2

REPORT INFORMATION
  Report Type: 
  Country: None (occurrence: None)
  Receive Date: 20090612
  Receipt Date: 20090410
  Transmission Date: 20091009
  Serious: No
  Sender: FDA-Public Use
  Company Number: US-ABBOTT-09P-163-0567651-00

PATIENT
  Sex: Female
  Weight: 54.48 kg

DRUGS (15)
  1. HUMIRA [Suspect]
     Indication: RHEUMATOID ARTHRITIS
     Route: 058
     Dates: start: 20050101
  2. SULFASALAZINE [Concomitant]
     Indication: COLITIS ULCERATIVE
  3. SYNTHROID [Concomitant]
     Indication: HYPOTHYROIDISM
  4. SIMVASTATIN [Concomitant]
     Indication: PROPHYLAXIS
  5. SIMVASTATIN [Concomitant]
     Indication: BLOOD CHOLESTEROL INCREASED
  6. FLUOXETINE HCL [Concomitant]
     Indication: HORMONE REPLACEMENT THERAPY
  7. FERROUS SULFATE TAB [Concomitant]
     Indication: ANAEMIA
  8. FOLIC ACID [Concomitant]
     Indication: RHEUMATOID ARTHRITIS
  9. MULTI-VITAMIN [Concomitant]
     Indication: ROUTINE HEALTH MAINTENANCE
  10. CALCIUM [Concomitant]
     Indication: ROUTINE HEALTH MAINTENANCE
  11. ASCORBIC ACID [Concomitant]
     Indication: ROUTINE HEALTH MAINTENANCE
  12. TRENTAL [Concomitant]
     Indication: POOR PERIPHERAL CIRCULATION
  13. CLARITIN [Concomitant]
     Indication: HYPERSENSITIVITY
  14. PRILOSEC [Concomitant]
     Indication: GASTROOESOPHAGEAL REFLUX DISEASE
  15. INSULIN PUMP [Concomitant]
     Indication: DIABETES MELLITUS

REACTIONS (1)
  - NASOPHARYNGITIS [None]
